FAERS Safety Report 7554234-8 (Version None)
Quarter: 2011Q2

REPORT INFORMATION
  Report Type: 
  Country: None (occurrence: None)
  Receive Date: 20110617
  Receipt Date: 20110607
  Transmission Date: 20111010
  Serious: Yes (Other)
  Sender: FDA-Public Use
  Company Number: PHHY2011JP49796

PATIENT
  Age: 69 Year
  Sex: Female

DRUGS (7)
  1. TELMISARTAN [Suspect]
     Dosage: 80 MG, UNK
  2. ALFACALCIDOL [Suspect]
     Dosage: 2 UG/DAY
  3. EZETIMIBE [Suspect]
     Dosage: 10 MG, UNK
  4. OMEPRAZOLE [Suspect]
     Dosage: 20 MG, UNK
  5. BENIDIPINE [Suspect]
     Dosage: 8 MG, UNK
  6. GLIMEPIRIDE [Suspect]
     Dosage: 1 MG/DAY
  7. EICOSAPENTAENOIC ACID [Suspect]
     Dosage: 1600 MG/DAY

REACTIONS (4)
  - URINE POTASSIUM INCREASED [None]
  - HYPERTENSION [None]
  - HYPOKALAEMIA [None]
  - BLOOD BICARBONATE INCREASED [None]
